FAERS Safety Report 8379753-6 (Version None)
Quarter: 2012Q2

REPORT INFORMATION
  Report Type: 
  Country: None (occurrence: None)
  Receive Date: 20120523
  Receipt Date: 20120518
  Transmission Date: 20120825
  Serious: Yes (Life-Threatening, Hospitalization)
  Sender: FDA-Public Use
  Company Number: US-GENZYME-MOZO-1000700

PATIENT
  Age: 59 Year
  Sex: Female

DRUGS (3)
  1. MOZOBIL [Suspect]
     Indication: MYELODYSPLASTIC SYNDROME
     Dosage: DAYS 1-5
     Route: 065
  2. GRANULOCYTE COLONY STIMULATING FACTOR [Suspect]
     Indication: MYELODYSPLASTIC SYNDROME
     Dosage: 10 MCG/KG, QD; DAYS 1-5
     Route: 058
  3. VIDAZA [Suspect]
     Indication: MYELODYSPLASTIC SYNDROME
     Dosage: 75 MG/M2, QD; DAYS 1-5
     Route: 058

REACTIONS (1)
  - SINUSITIS [None]
